FAERS Safety Report 5928089-9 (Version None)
Quarter: 2008Q4

REPORT INFORMATION
  Report Type: 
  Country: None (occurrence: None)
  Receive Date: 20081023
  Receipt Date: 20081017
  Transmission Date: 20090506
  Serious: Yes (Other)
  Sender: FDA-Public Use
  Company Number: B0542148A

PATIENT
  Age: 37 Year
  Sex: Male

DRUGS (3)
  1. PAXIL [Suspect]
     Indication: DRUG USE FOR UNKNOWN INDICATION
     Route: 048
     Dates: start: 20080101, end: 20080101
  2. PAXIL [Suspect]
     Route: 048
     Dates: start: 20080101, end: 20080101
  3. PAXIL [Suspect]
     Route: 048
     Dates: start: 20080101, end: 20080101

REACTIONS (6)
  - APATHY [None]
  - ASTHENIA [None]
  - DRUG WITHDRAWAL SYNDROME [None]
  - MOOD ALTERED [None]
  - RESTLESSNESS [None]
  - SUICIDE ATTEMPT [None]
